FAERS Safety Report 6422008-7 (Version None)
Quarter: 2009Q4

REPORT INFORMATION
  Report Type: 
  Country: None (occurrence: None)
  Receive Date: 20091030
  Receipt Date: 20091019
  Transmission Date: 20100525
  Serious: Yes (Life-Threatening, Other)
  Sender: FDA-Public Use
  Company Number: IE-ELI_LILLY_AND_COMPANY-IE200910004464

PATIENT
  Age: 70 Year
  Sex: Female

DRUGS (1)
  1. GEMZAR [Suspect]
     Indication: ADENOCARCINOMA PANCREAS
     Dosage: 1000 MG/M2, WEEKLY; THREE OUT OF EVERY FOUR WEEKS
     Route: 042
     Dates: start: 20070101, end: 20080501

REACTIONS (2)
  - ISCHAEMIC STROKE [None]
  - THROMBOTIC MICROANGIOPATHY [None]
